FAERS Safety Report 5981651-X (Version None)
Quarter: 2008Q4

REPORT INFORMATION
  Report Type: 
  Country: None (occurrence: None)
  Receive Date: 20081202
  Receipt Date: 20081118
  Transmission Date: 20090506
  Serious: Yes (Hospitalization)
  Sender: FDA-Public Use
  Company Number: KV200800303

PATIENT
  Age: 54 Year
  Sex: Female
  Weight: 90.7 kg

DRUGS (9)
  1. MORPHINE SULFATE [Suspect]
     Indication: BACK PAIN
     Dosage: 15MG, EVERY MORNING, QD, ORAL
     Route: 048
     Dates: start: 20030101
  2. SINGULAIR /01362601/ (MONTELUKAST) [Concomitant]
  3. PROTONIX /01263201/ (PANTOPRAZOLE) [Concomitant]
  4. ALBUTEROL /00139501/ (SALBUTAMOL) [Concomitant]
  5. ADVAIR DISKUS 100/50 [Concomitant]
  6. FLUOXETINE [Concomitant]
  7. COMBIVENT /01033501/ (IPRATROPIUM BROMIDE, SALBUTAMOL) [Concomitant]
  8. ASPIRIN [Concomitant]
  9. LISINOPRIL [Concomitant]

REACTIONS (5)
  - DIZZINESS [None]
  - HYPOAESTHESIA [None]
  - PARAESTHESIA [None]
  - PRODUCT QUALITY ISSUE [None]
  - VISION BLURRED [None]
